FAERS Safety Report 7998581-4 (Version None)
Quarter: 2011Q4

REPORT INFORMATION
  Report Type: 
  Country: None (occurrence: None)
  Receive Date: 20111221
  Receipt Date: 20111208
  Transmission Date: 20120403
  Serious: Yes (Hospitalization)
  Sender: FDA-Public Use
  Company Number: US-ACTELION-A-US2011-55424

PATIENT

DRUGS (2)
  1. TRACLEER [Suspect]
     Indication: PULMONARY ARTERIAL HYPERTENSION
     Dosage: UNK
     Route: 048
     Dates: start: 20050707, end: 20111201
  2. COUMADIN [Concomitant]

REACTIONS (11)
  - COUGH [None]
  - VENTRICULAR FIBRILLATION [None]
  - CATHETER SITE INFECTION [None]
  - CHEST PAIN [None]
  - CATHETER SITE ERYTHEMA [None]
  - CARDIAC FAILURE [None]
  - CATHETER SITE SWELLING [None]
  - FATIGUE [None]
  - DIZZINESS [None]
  - CATHETER SITE PAIN [None]
  - MALAISE [None]
